FAERS Safety Report 21268545 (Version 1)
Quarter: 2022Q3

REPORT INFORMATION
  Report Type: Spontaneous
  Country: CA (occurrence: CA)
  Receive Date: 20220830
  Receipt Date: 20220830
  Transmission Date: 20221027
  Serious: Yes (Hospitalization, Other)
  Sender: FDA-Public Use
  Company Number: CA-TEVA-2022-CA-2067458

PATIENT
  Age: 74 Year
  Sex: Female

DRUGS (1)
  1. OXALIPLATIN [Suspect]
     Active Substance: OXALIPLATIN
     Indication: Product used for unknown indication

REACTIONS (7)
  - Dysaesthesia pharynx [Recovered/Resolved]
  - Dyspnoea [Recovered/Resolved]
  - Emotional distress [Recovered/Resolved]
  - Hypertension [Recovered/Resolved]
  - Nervousness [Recovered/Resolved]
  - Stridor [Recovered/Resolved]
  - Heart rate increased [Recovered/Resolved]
